FAERS Safety Report 16986643 (Version 1)
Quarter: 2019Q4

REPORT INFORMATION
  Report Type: Spontaneous
  Country: US (occurrence: US)
  Receive Date: 20191103
  Receipt Date: 20191103
  Transmission Date: 20200122
  Serious: Yes (Other)
  Sender: FDA-Public Use
  Company Number: US-MTPC-MTDA2019-0076687

PATIENT

DRUGS (2)
  1. RADICAVA [Suspect]
     Active Substance: EDARAVONE
     Indication: AMYOTROPHIC LATERAL SCLEROSIS
     Dosage: 60 MG (2 BAGS FOR 1 HOUR), 10 DAYS OUT OF 14 DAY PERIODS, FOLLOWED BY A 14-DAY DRUG FREE PERIODS
     Route: 065
     Dates: start: 20181226
  2. RILUZOLE. [Concomitant]
     Active Substance: RILUZOLE
     Indication: PRODUCT USED FOR UNKNOWN INDICATION

REACTIONS (1)
  - Atypical pneumonia [Not Recovered/Not Resolved]
